FAERS Safety Report 8904999 (Version 2)
Quarter: 2012Q4

REPORT INFORMATION
  Report Type: 
  Country: US (occurrence: US)
  Receive Date: 20121111
  Receipt Date: 20121115
  Transmission Date: 20130627
  Serious: Yes (Other)
  Sender: FDA-Public Use
  Company Number: US-009507513-1210USA010564

PATIENT
  Sex: Male

DRUGS (3)
  1. VICTRELIS [Suspect]
     Indication: HEPATITIS C
     Dosage: UNK
     Dates: start: 20121012, end: 20121030
  2. RIBAVIRIN [Suspect]
     Indication: HEPATITIS C
     Dosage: UNK
     Dates: start: 20120914, end: 20121030
  3. PEGASYS [Suspect]
     Indication: HEPATITIS C
     Dosage: UNK
     Dates: start: 20120914, end: 20121030

REACTIONS (7)
  - Hallucination [Unknown]
  - Fatigue [Unknown]
  - Irritability [Unknown]
  - Memory impairment [Unknown]
  - Pruritus [Unknown]
  - Confusional state [Unknown]
  - Asthenia [Unknown]
